FAERS Safety Report 12553097 (Version 1)
Quarter: 2016Q3

REPORT INFORMATION
  Report Type: Spontaneous
  Country: US (occurrence: US)
  Receive Date: 20160713
  Receipt Date: 20160713
  Transmission Date: 20161109
  Serious: Yes (Other)
  Sender: FDA-Public Use
  Company Number: US-PFIZER INC-2016338249

PATIENT
  Sex: Female

DRUGS (1)
  1. CYTOTEC [Suspect]
     Active Substance: MISOPROSTOL
     Dosage: 200 MG, TABLET, SUBLINGUALLY
     Route: 060

REACTIONS (3)
  - Asthma [Unknown]
  - Oropharyngeal blistering [Unknown]
  - Rash [Unknown]
